FAERS Safety Report 15089443 (Version 1)
Quarter: 2018Q2

REPORT INFORMATION
  Report Type: Spontaneous
  Country: DE (occurrence: DE)
  Receive Date: 20180629
  Receipt Date: 20180629
  Transmission Date: 20180711
  Serious: Yes (Life-Threatening, Hospitalization, Other)
  Sender: FDA-Public Use
  Company Number: DE-ROCHE-2107041

PATIENT
  Age: 26 Year
  Sex: Female
  Weight: 104 kg

DRUGS (9)
  1. METAMIZOLE [Concomitant]
     Active Substance: METAMIZOLE
     Route: 042
  2. SUFENTANIL [Concomitant]
     Active Substance: SUFENTANIL
     Route: 065
  3. CLONIDIN [Concomitant]
     Active Substance: CLONIDINE
     Route: 065
  4. FRAXIPARIN [Concomitant]
     Active Substance: NADROPARIN CALCIUM
     Route: 058
  5. PANTOPRAZOL [Concomitant]
     Active Substance: PANTOPRAZOLE SODIUM
     Route: 042
  6. MABTHERA [Suspect]
     Active Substance: RITUXIMAB
     Route: 065
     Dates: start: 2016, end: 2016
  7. LEMTRADA [Concomitant]
     Active Substance: ALEMTUZUMAB
     Indication: MULTIPLE SCLEROSIS
     Route: 065
     Dates: start: 2016
  8. MABTHERA [Suspect]
     Active Substance: RITUXIMAB
     Indication: MULTIPLE SCLEROSIS
     Route: 065
     Dates: start: 201003, end: 201111
  9. MELPERON [Concomitant]
     Active Substance: MELPERONE
     Route: 065

REACTIONS (19)
  - Sepsis [Not Recovered/Not Resolved]
  - Septic shock [Unknown]
  - Multiple organ dysfunction syndrome [Unknown]
  - Pleural effusion [Unknown]
  - Off label use [Unknown]
  - Neuropathy peripheral [Unknown]
  - Respiratory failure [Unknown]
  - Cardiac infection [Recovering/Resolving]
  - Quadriparesis [Unknown]
  - Hypokalaemia [Unknown]
  - Acute respiratory distress syndrome [Recovered/Resolved]
  - Decubitus ulcer [Unknown]
  - Euthyroid sick syndrome [Unknown]
  - Cough [Unknown]
  - Enterococcal infection [Unknown]
  - Intentional product use issue [Unknown]
  - Cardiac failure [Not Recovered/Not Resolved]
  - Acute kidney injury [Unknown]
  - Ascites [Unknown]

NARRATIVE: CASE EVENT DATE: 20180321
